FAERS Safety Report 7632000-2 (Version None)
Quarter: 2011Q3

REPORT INFORMATION
  Report Type: 
  Country: None (occurrence: None)
  Receive Date: 20110725
  Receipt Date: 20100618
  Transmission Date: 20111222
  Serious: No
  Sender: FDA-Public Use
  Company Number: US-BRISTOL-MYERS SQUIBB COMPANY-11956083

PATIENT
  Age: 73 Year
  Sex: Female
  Weight: 65 kg

DRUGS (12)
  1. TOPROL-XL [Concomitant]
  2. CELEBREX [Concomitant]
  3. POTASSIUM CHLORIDE [Concomitant]
  4. AVAPRO [Concomitant]
  5. SERZONE [Suspect]
     Route: 048
  6. LIPITOR [Concomitant]
     Dates: start: 20010701
  7. FUROSEMIDE [Concomitant]
  8. ASPIRIN [Concomitant]
  9. COUMADIN [Suspect]
     Indication: CORONARY ARTERY BYPASS
     Route: 048
     Dates: start: 20020101
  10. SIMVASTATIN [Concomitant]
  11. COUMADIN [Suspect]
     Indication: MITRAL VALVE REPLACEMENT
     Route: 048
     Dates: start: 20020101
  12. ACIPHEX [Concomitant]

REACTIONS (2)
  - BACK PAIN [None]
  - CONTUSION [None]
